FAERS Safety Report 7294645 (Version 3)
Quarter: 2018Q4

REPORT INFORMATION
  Report Type: Spontaneous
  Country: ES (occurrence: DE)
  Receive Date: 20100225
  Receipt Date: 20181224
  Transmission Date: 20190205
  Serious: Yes (Hospitalization, Other)
  Sender: FDA-Public Use
  Company Number: DE-ASTRAZENECA-2010SE07474

PATIENT
  Age: 56 Year
  Sex: Male

DRUGS (17)
  1. SEROQUEL XR [Interacting]
     Active Substance: QUETIAPINE FUMARATE
     Route: 048
     Dates: start: 20091023, end: 20091023
  2. TAXILAN (PERAZINE) [Interacting]
     Active Substance: PERAZINE
     Route: 048
     Dates: start: 20091023
  3. PLAVIX [Concomitant]
     Active Substance: CLOPIDOGREL BISULFATE
     Route: 048
  4. CODIOVAN [Concomitant]
     Active Substance: HYDROCHLOROTHIAZIDE\VALSARTAN
     Dosage: 160/12.5 MG
     Route: 048
  5. DELIX [Concomitant]
     Route: 048
  6. ERGENYL [Interacting]
     Active Substance: VALPROIC ACID
     Route: 048
     Dates: start: 20091027, end: 20091028
  7. SEROQUEL XR [Interacting]
     Active Substance: QUETIAPINE FUMARATE
     Route: 048
     Dates: start: 20091024, end: 20091027
  8. PANTOZOL [Concomitant]
     Active Substance: PANTOPRAZOLE SODIUM
     Route: 048
  9. SEROQUEL XR [Suspect]
     Active Substance: QUETIAPINE FUMARATE
     Route: 048
     Dates: start: 20090925, end: 20090928
  10. SEROQUEL XR [Interacting]
     Active Substance: QUETIAPINE FUMARATE
     Route: 048
     Dates: start: 20091006, end: 20091013
  11. ERGENYL [Interacting]
     Active Substance: VALPROIC ACID
     Route: 048
     Dates: start: 20091029, end: 20091029
  12. ASPIRIN. [Concomitant]
     Active Substance: ASPIRIN
     Route: 048
  13. SEROQUEL XR [Interacting]
     Active Substance: QUETIAPINE FUMARATE
     Route: 048
     Dates: start: 20091014, end: 20091022
  14. SEROQUEL XR [Interacting]
     Active Substance: QUETIAPINE FUMARATE
     Route: 048
     Dates: start: 20091105
  15. SEROQUEL XR [Interacting]
     Active Substance: QUETIAPINE FUMARATE
     Route: 048
     Dates: start: 20091028, end: 20091104
  16. SEROQUEL XR [Interacting]
     Active Substance: QUETIAPINE FUMARATE
     Route: 048
     Dates: start: 20090929, end: 20091005
  17. ERGENYL [Interacting]
     Active Substance: VALPROIC ACID
     Route: 048
     Dates: start: 20091118

REACTIONS (5)
  - Altered state of consciousness [Recovered/Resolved]
  - Restlessness [Recovered/Resolved]
  - Prescribed overdose [Recovered/Resolved]
  - Drug interaction [Recovered/Resolved]
  - Depressed level of consciousness [Recovered/Resolved]

NARRATIVE: CASE EVENT DATE: 20091027
